FAERS Safety Report 9450229 (Version 2)
Quarter: 2014Q1

REPORT INFORMATION
  Report Type: Report from Study
  Country: AR (occurrence: AR)
  Receive Date: 20130809
  Receipt Date: 20140203
  Transmission Date: 20141002
  Serious: Yes (Life-Threatening, Hospitalization)
  Sender: FDA-Public Use
  Company Number: PHHY2013AR085757

PATIENT
  Sex: Female

DRUGS (2)
  1. DIOVAN [Suspect]
     Indication: HYPERTENSION
     Dosage: UNK UKN, (320 MG) 2 OR 3 TABLETS
     Route: 048
  2. DIOVAN [Suspect]
     Indication: CARDIAC DISORDER

REACTIONS (4)
  - Feeling abnormal [Unknown]
  - Hypertension [Recovered/Resolved]
  - Pain [Recovering/Resolving]
  - Headache [Recovering/Resolving]
